FAERS Safety Report 18483103 (Version 1)
Quarter: 2020Q4

REPORT INFORMATION
  Report Type: Spontaneous
  Country: US (occurrence: US)
  Receive Date: 20201109
  Receipt Date: 20201109
  Transmission Date: 20210114
  Serious: Yes (Hospitalization)
  Sender: FDA-Public Use
  Company Number: US-ROCHE-2536871

PATIENT
  Age: 40 Year
  Sex: Male

DRUGS (2)
  1. PULMOZYME [Suspect]
     Active Substance: DORNASE ALFA
     Indication: PRODUCT USED FOR UNKNOWN INDICATION
     Dosage: ONGOING: YES, STRENGTH: 1 MG/ML REFRIGERATED AMPULE, 1MG/ML
     Route: 048
     Dates: start: 201801
  2. PULMOZYME [Suspect]
     Active Substance: DORNASE ALFA
     Dosage: 2400 UNIT
     Route: 048

REACTIONS (1)
  - Cough [Unknown]

NARRATIVE: CASE EVENT DATE: 20190109
